FAERS Safety Report 7840915-5 (Version None)
Quarter: 2011Q4

REPORT INFORMATION
  Report Type: 
  Country: None (occurrence: None)
  Receive Date: 20111021
  Receipt Date: 20111021
  Transmission Date: 20120403
  Serious: Yes (Life-Threatening, Hospitalization, Other)
  Sender: FDA-Public Use
  Company Number: None

PATIENT
  Sex: Female
  Weight: 99.7913 kg

DRUGS (2)
  1. WARFARIN SODIUM [Suspect]
     Indication: ATRIAL FIBRILLATION
     Dosage: WARFARIN 5MG 1 1/2 TAB MWF , 1 TAB TU-TH-SAT-SUN ORALLY
     Route: 048
     Dates: start: 20110228, end: 20110808
  2. ENOXAPARIN [Suspect]
     Indication: ATRIAL FIBRILLATION
     Dosage: ENOXAPARIN 150MG/ML DAILY/AM S.C. INJECTION
     Route: 058
     Dates: start: 20110722, end: 20110808

REACTIONS (3)
  - CONTUSION [None]
  - HAEMORRHAGE [None]
  - PAIN IN EXTREMITY [None]
